FAERS Safety Report 18644468 (Version 6)
Quarter: 2021Q2

REPORT INFORMATION
  Report Type: Spontaneous
  Country: CN (occurrence: CN)
  Receive Date: 20201221
  Receipt Date: 20210612
  Transmission Date: 20210717
  Serious: Yes (Death, Other)
  Sender: FDA-Public Use
  Company Number: CN-B.I. PHARMACEUTICALS,INC./RIDGEFIELD-2020-BI-068689

PATIENT
  Age: 61 Year
  Sex: Male
  Weight: 80 kg

DRUGS (1)
  1. PRAXBIND [Suspect]
     Active Substance: IDARUCIZUMAB
     Indication: PROCOAGULANT THERAPY
     Route: 065
     Dates: start: 20201211, end: 20201211

REACTIONS (4)
  - Intracranial pressure increased [Not Recovered/Not Resolved]
  - Blood pressure decreased [Recovering/Resolving]
  - Cerebral infarction [Fatal]
  - Discoloured vomit [Unknown]

NARRATIVE: CASE EVENT DATE: 20201211
